FAERS Safety Report 15905221 (Version 1)
Quarter: 2019Q1

REPORT INFORMATION
  Report Type: Spontaneous
  Country: US (occurrence: US)
  Receive Date: 20190204
  Receipt Date: 20190204
  Transmission Date: 20190417
  Serious: Yes (Other)
  Sender: FDA-Public Use
  Company Number: US-BAYER-2019-024109

PATIENT
  Sex: Female

DRUGS (1)
  1. MIRENA [Suspect]
     Active Substance: LEVONORGESTREL
     Dosage: 20 MCG/24HR, CONT
     Route: 015
     Dates: start: 200704

REACTIONS (8)
  - Ocular discomfort [None]
  - Vision blurred [None]
  - Intracranial pressure increased [None]
  - Nausea [None]
  - Headache [None]
  - Tunnel vision [None]
  - Visual field defect [None]
  - Ear discomfort [None]

NARRATIVE: CASE EVENT DATE: 201005
